FAERS Safety Report 8802909 (Version 1)
Quarter: 2012Q4

REPORT INFORMATION
  Report Type: 
  Country: US (occurrence: US)
  Receive Date: 20120924
  Receipt Date: 20120924
  Transmission Date: 20130627
  Serious: No
  Sender: FDA-Public Use
  Company Number: US-PFIZER INC-2012235047

PATIENT
  Age: 66 Year
  Sex: Female
  Weight: 70.3 kg

DRUGS (6)
  1. LYRICA [Suspect]
     Indication: NERVE INJURY
     Dosage: UNK
     Route: 048
     Dates: start: 2010, end: 2010
  2. LYRICA [Suspect]
     Indication: NEUROPATHY PERIPHERAL
  3. CYMBALTA [Concomitant]
     Indication: DEPRESSION
     Dosage: UNK
  4. VESICARE [Concomitant]
     Indication: URINARY INCONTINENCE
     Dosage: UNK
  5. MIRALAX [Concomitant]
     Indication: CONSTIPATION
     Dosage: UNK
  6. OXYCODONE [Concomitant]
     Indication: PAIN
     Dosage: UNK, 3xday

REACTIONS (3)
  - Dizziness [Recovered/Resolved]
  - Gait disturbance [Unknown]
  - Balance disorder [Recovered/Resolved]
